FAERS Safety Report 18886278 (Version 2)
Quarter: 2021Q1

REPORT INFORMATION
  Report Type: Report from Study
  Country: BR (occurrence: BR)
  Receive Date: 20210212
  Receipt Date: 20210227
  Transmission Date: 20210420
  Serious: Yes (Hospitalization)
  Sender: FDA-Public Use
  Company Number: NVSC2021BR033804

PATIENT
  Sex: Female
  Weight: 69 kg

DRUGS (2)
  1. COSENTYX [Suspect]
     Active Substance: SECUKINUMAB
     Indication: RHEUMATIC DISORDER
     Dosage: 300 MG, QW (2 PENS OF 150 MG)
     Route: 058
     Dates: start: 20210215
  2. COSENTYX [Suspect]
     Active Substance: SECUKINUMAB
     Indication: ANKYLOSING SPONDYLITIS
     Dosage: 300 MG, QW (2 PENS OF 150 MG)
     Route: 058
     Dates: start: 202101

REACTIONS (7)
  - Product use in unapproved indication [Unknown]
  - Pain in extremity [Not Recovered/Not Resolved]
  - Malaise [Recovering/Resolving]
  - Chest pain [Not Recovered/Not Resolved]
  - Pain [Recovering/Resolving]
  - Hypoaesthesia [Not Recovered/Not Resolved]
  - Peripheral swelling [Not Recovered/Not Resolved]
